FAERS Safety Report 7128741-6 (Version None)
Quarter: 2010Q4

REPORT INFORMATION
  Report Type: 
  Country: None (occurrence: None)
  Receive Date: 20101130
  Receipt Date: 20101125
  Transmission Date: 20110411
  Serious: Yes (Death, Hospitalization)
  Sender: FDA-Public Use
  Company Number: PHHO2010CA17909

PATIENT

DRUGS (3)
  1. AFINITOR [Suspect]
     Indication: BLADDER CANCER
     Dosage: 2.5 MG DAILY
     Route: 048
     Dates: start: 20100823, end: 20101018
  2. GEMCITABINE [Suspect]
     Indication: BLADDER CANCER
     Dosage: 100 MG/M2 WEEKLY
     Dates: start: 20100920
  3. RADIOTHERAPY [Concomitant]

REACTIONS (19)
  - ABNORMAL BEHAVIOUR [None]
  - AGITATION [None]
  - BLADDER CATHETERISATION [None]
  - BRONCHOPNEUMONIA [None]
  - CARDIAC ARREST [None]
  - CARDIAC FAILURE [None]
  - CONFUSIONAL STATE [None]
  - COUGH [None]
  - DELIRIUM [None]
  - DIARRHOEA [None]
  - FATIGUE [None]
  - LUNG CONSOLIDATION [None]
  - OXYGEN SATURATION DECREASED [None]
  - PLEURAL EFFUSION [None]
  - PNEUMOTHORAX [None]
  - PYREXIA [None]
  - THORACIC CAVITY DRAINAGE [None]
  - TOBACCO WITHDRAWAL SYMPTOMS [None]
  - URINARY RETENTION [None]
